FAERS Safety Report 9109500 (Version 2)
Quarter: 2013Q2

REPORT INFORMATION
  Report Type: Spontaneous
  Country: US (occurrence: US)
  Receive Date: 20130222
  Receipt Date: 20130412
  Transmission Date: 20140414
  Serious: No
  Sender: FDA-Public Use
  Company Number: US-TEVA-387578USA

PATIENT
  Sex: Female
  Weight: 99.88 kg

DRUGS (2)
  1. PROAIR HFA [Suspect]
     Indication: ASTHMA
     Dosage: 1080 MICROGRAM DAILY;
     Route: 055
  2. QVAR [Suspect]
     Indication: ASTHMA
     Route: 055

REACTIONS (1)
  - Bronchitis [Unknown]
